FAERS Safety Report 14129532 (Version 2)
Quarter: 2017Q4

REPORT INFORMATION
  Report Type: Spontaneous
  Country: FR (occurrence: FR)
  Receive Date: 20171026
  Receipt Date: 20171102
  Transmission Date: 20180321
  Serious: Yes (Hospitalization)
  Sender: FDA-Public Use
  Company Number: FR-PFIZER INC-2017459539

PATIENT
  Age: 71 Year
  Sex: Male

DRUGS (10)
  1. DOCETAXEL HOSPIRA [Suspect]
     Active Substance: DOCETAXEL
     Indication: PROSTATE CANCER
     Dosage: 150 MG, SINGLE
     Route: 042
     Dates: start: 20170928, end: 20170928
  2. DOLIPRANE [Suspect]
     Active Substance: ACETAMINOPHEN
     Dosage: UNK
     Route: 048
  3. CALCIPARINE [Suspect]
     Active Substance: HEPARIN CALCIUM
     Indication: DEEP VEIN THROMBOSIS
     Dosage: UNK
     Route: 058
  4. TAMSULOSINE [Suspect]
     Active Substance: TAMSULOSIN HYDROCHLORIDE
     Dosage: UNK
     Route: 048
  5. PERINDOPRIL [Concomitant]
     Active Substance: PERINDOPRIL
     Dosage: UNK
  6. ACTISKENAN [Suspect]
     Active Substance: MORPHINE SULFATE
     Dosage: UNK
     Route: 048
  7. EUPANTOL [Suspect]
     Active Substance: PANTOPRAZOLE SODIUM
     Dosage: UNK
     Route: 048
  8. BISOPROLOL FUMARATE. [Suspect]
     Active Substance: BISOPROLOL FUMARATE
     Indication: HYPERTENSION
     Dosage: UNK
     Route: 048
  9. DUROGESIC [Suspect]
     Active Substance: FENTANYL
     Dosage: UNK
     Route: 062
  10. FORLAX [Suspect]
     Active Substance: POLYETHYLENE GLYCOL 4000
     Dosage: UNK
     Route: 048

REACTIONS (1)
  - Eczema [Not Recovered/Not Resolved]

NARRATIVE: CASE EVENT DATE: 20171002
